FAERS Safety Report 5834352-2 (Version None)
Quarter: 2008Q3

REPORT INFORMATION
  Report Type: 
  Country: None (occurrence: None)
  Receive Date: 20080805
  Receipt Date: 20080728
  Transmission Date: 20090109
  Serious: Yes (Death, Hospitalization, Other)
  Sender: FDA-Public Use
  Company Number: US-PFIZER INC-2006094070

PATIENT
  Sex: Female
  Weight: 55.3 kg

DRUGS (5)
  1. BEXTRA [Suspect]
     Indication: ARTHRITIS
     Dates: start: 20031104, end: 20031202
  2. ASPIRIN [Concomitant]
     Indication: CHEST PAIN
     Dates: start: 20031201, end: 20031201
  3. NITROGLYCERIN [Concomitant]
     Indication: CHEST PAIN
     Dates: start: 20031201, end: 20031201
  4. WARFARIN SODIUM [Concomitant]
     Indication: ATRIAL FIBRILLATION
     Dates: start: 20031201, end: 20031201
  5. NORVASC [Concomitant]
     Indication: HYPERTENSION

REACTIONS (1)
  - ACUTE MYOCARDIAL INFARCTION [None]
